FAERS Safety Report 7873293-6 (Version None)
Quarter: 2011Q4

REPORT INFORMATION
  Report Type: 
  Country: None (occurrence: None)
  Receive Date: 20111030
  Receipt Date: 20110503
  Transmission Date: 20120403
  Serious: No
  Sender: FDA-Public Use
  Company Number: US-AMGEN-USASP2011022839

PATIENT
  Age: 59 Year
  Sex: Female

DRUGS (9)
  1. PREDNISONE [Concomitant]
     Dosage: 1 MG, UNK
     Route: 048
  2. EFFEXOR [Concomitant]
     Dosage: 75 MG, UNK
     Route: 048
  3. MOBIC [Concomitant]
     Dosage: 7.5 MG, UNK
     Route: 048
  4. PLAQUENIL [Concomitant]
     Dosage: 200 MG, UNK
     Route: 048
  5. LYRICA [Concomitant]
     Dosage: 50 MG, UNK
     Route: 048
  6. OMEPRAZOLE [Concomitant]
     Dosage: 10 MG, UNK
     Route: 048
  7. ENBREL [Suspect]
     Dosage: 50 MG, QWK
     Route: 058
  8. TRAMADOL HCL [Concomitant]
     Dosage: 50 MG, UNK
     Route: 048
  9. FOSAMAX [Concomitant]
     Dosage: 5 MG, UNK
     Route: 048

REACTIONS (3)
  - INJECTION SITE PRURITUS [None]
  - INJECTION SITE REACTION [None]
  - INJECTION SITE ERYTHEMA [None]
